FAERS Safety Report 6730037-9 (Version None)
Quarter: 2010Q2

REPORT INFORMATION
  Report Type: 
  Country: None (occurrence: None)
  Receive Date: 20100518
  Receipt Date: 20100507
  Transmission Date: 20101027
  Serious: Yes (Hospitalization, Other)
  Sender: FDA-Public Use
  Company Number: US-PFIZER INC-2010049009

PATIENT
  Sex: Male
  Weight: 72.2 kg

DRUGS (1)
  1. VFEND [Suspect]
     Indication: FUNGAL INFECTION
     Dosage: 300 MG, 2X/DAY
     Route: 048
     Dates: start: 20100212, end: 20100325

REACTIONS (3)
  - ACUTE MYELOID LEUKAEMIA RECURRENT [None]
  - HALLUCINATION [None]
  - PNEUMONIA [None]
